FAERS Safety Report 14818355 (Version 1)
Quarter: 2018Q2

REPORT INFORMATION
  Report Type: Spontaneous
  Country: US (occurrence: US)
  Receive Date: 20180427
  Receipt Date: 20180427
  Transmission Date: 20180711
  Serious: No
  Sender: FDA-Public Use
  Company Number: US-TEVA-2018-US-885396

PATIENT
  Age: 54 Year
  Sex: Female

DRUGS (2)
  1. QVAR [Suspect]
     Active Substance: BECLOMETHASONE DIPROPIONATE
     Indication: ASTHMA
     Route: 065
     Dates: start: 2005
  2. QVAR REDIHALER [Suspect]
     Active Substance: BECLOMETHASONE DIPROPIONATE
     Indication: ASTHMA
     Route: 065

REACTIONS (5)
  - Wrong technique in product usage process [Unknown]
  - Adverse drug reaction [Unknown]
  - Fungal infection [Unknown]
  - Aphthous ulcer [Unknown]
  - Candida infection [Unknown]

NARRATIVE: CASE EVENT DATE: 2005
